FAERS Safety Report 4905906-2 (Version None)
Quarter: 2006Q1

REPORT INFORMATION
  Report Type: 
  Country: None (occurrence: None)
  Receive Date: 20060113
  Receipt Date: 20051214
  Transmission Date: 20060701
  Serious: No
  Sender: FDA-Public Use
  Company Number: 2005SP004408

PATIENT
  Age: 26 Year

DRUGS (1)
  1. LUNESTA [Suspect]
     Dosage: 1 MG;ORAL
     Route: 048
     Dates: start: 20050101

REACTIONS (1)
  - NIGHTMARE [None]
